FAERS Safety Report 8589857-0 (Version None)
Quarter: 2012Q3

REPORT INFORMATION
  Report Type: 
  Country: None (occurrence: None)
  Receive Date: 20120813
  Receipt Date: 20120803
  Transmission Date: 20120928
  Serious: Yes (Hospitalization)
  Sender: FDA-Public Use
  Company Number: US-ASTRAZENECA-2012SE40942

PATIENT
  Age: 67 Year
  Sex: Female

DRUGS (3)
  1. NEXIUM [Suspect]
     Route: 048
  2. PROTONIX [Concomitant]
  3. LISINOPRIL [Suspect]
     Route: 048

REACTIONS (6)
  - DYSPNOEA [None]
  - HAEMOPTYSIS [None]
  - HIATUS HERNIA [None]
  - PNEUMONIA [None]
  - MEMORY IMPAIRMENT [None]
  - MENTAL IMPAIRMENT [None]
